FAERS Safety Report 4693846-6 (Version None)
Quarter: 2005Q2

REPORT INFORMATION
  Report Type: 
  Country: None (occurrence: None)
  Receive Date: 20050616
  Receipt Date: 20050603
  Transmission Date: 20051028
  Serious: Yes (Other)
  Sender: FDA-Public Use
  Company Number: 2005027606

PATIENT
  Age: 44 Year
  Sex: Male

DRUGS (7)
  1. CELEBREX [Suspect]
     Indication: RHEUMATOID ARTHRITIS
     Dosage: 400 MG (200 MG, 2  IN 1 D), ORAL
     Route: 048
     Dates: start: 20030327, end: 20050228
  2. PREDNISONE              (PREDNISONE) [Concomitant]
  3. OMEPRAZOLE [Concomitant]
  4. FOLIC ACID [Concomitant]
  5. FOXAMAX                        (ALENDORONATE SODIUM) [Concomitant]
  6. CARBASALATE (CARBASALATE) [Concomitant]
  7. METHOTREXATE [Suspect]
     Indication: RHEUMATOID ARTHRITIS
     Dosage: MG, 1 WK ORAL
     Route: 048
     Dates: start: 20021111

REACTIONS (4)
  - CARDIAC DISORDER [None]
  - CORONARY ARTERY STENOSIS [None]
  - FEELING ABNORMAL [None]
  - HEART RATE IRREGULAR [None]
